FAERS Safety Report 10902387 (Version 1)
Quarter: 2015Q1

REPORT INFORMATION
  Report Type: Spontaneous
  Country: DE (occurrence: DE)
  Receive Date: 20150310
  Receipt Date: 20150310
  Transmission Date: 20150721
  Serious: Yes (Hospitalization)
  Sender: FDA-Public Use
  Company Number: PHHY2015DE010411

PATIENT
  Age: 71 Year
  Sex: Female
  Weight: 53 kg

DRUGS (2)
  1. ULTIBRO BREEZHALER [Suspect]
     Active Substance: GLYCOPYRRONIUM\INDACATEROL
     Indication: ASTHMA
     Dosage: 1 DF, QD
     Route: 055
     Dates: start: 20140505
  2. DELMUNO [Concomitant]
     Active Substance: FELODIPINE
     Indication: HYPERTENSION
     Dosage: 1 DF, QD
     Route: 065

REACTIONS (6)
  - Erythema [Recovered/Resolved]
  - Rash [Recovered/Resolved]
  - Paraesthesia [Recovered/Resolved]
  - Ear swelling [Recovered/Resolved]
  - Leukaemia [Unknown]
  - Lip swelling [Recovered/Resolved]

NARRATIVE: CASE EVENT DATE: 2014
